FAERS Safety Report 7622073-5 (Version None)
Quarter: 2011Q3

REPORT INFORMATION
  Report Type: 
  Country: None (occurrence: None)
  Receive Date: 20110720
  Receipt Date: 20101207
  Transmission Date: 20111222
  Serious: Yes (Hospitalization, Other)
  Sender: FDA-Public Use
  Company Number: US-BAYER-201038175NA

PATIENT
  Age: 19 Year
  Sex: Female
  Weight: 95.238 kg

DRUGS (6)
  1. YAZ [Suspect]
     Indication: MENSTRUAL CYCLE MANAGEMENT
     Dosage: UNK
     Dates: start: 20070101, end: 20080101
  2. PRILOSEC [Concomitant]
     Dosage: 20 MG, UNK
     Route: 048
  3. YASMIN [Suspect]
     Indication: MENSTRUAL CYCLE MANAGEMENT
     Dosage: UNK
     Dates: start: 20050101, end: 20070101
  4. ZANTAC [Concomitant]
     Indication: PEPTIC ULCER
     Dosage: UNK
     Dates: start: 20060601, end: 20060801
  5. DROSPIRENONE AND ETHINYL ESTRADIOL [Suspect]
     Indication: ACNE
  6. ANALGESICS [Concomitant]
     Indication: PAIN

REACTIONS (4)
  - ABDOMINAL PAIN UPPER [None]
  - CHOLECYSTITIS ACUTE [None]
  - CHOLECYSTITIS INFECTIVE [None]
  - JAUNDICE [None]
